FAERS Safety Report 8496533-1 (Version None)
Quarter: 2012Q2

REPORT INFORMATION
  Report Type: 
  Country: None (occurrence: None)
  Receive Date: 20120627
  Receipt Date: 20120615
  Transmission Date: 20120825
  Serious: Yes (Other)
  Sender: FDA-Public Use
  Company Number: JP-2012-14118

PATIENT
  Age: 43 Year
  Sex: Female

DRUGS (1)
  1. PLETAL [Suspect]
     Indication: PROPHYLAXIS
     Dosage: 200 MG MILLIGRAM(S), DAILY DOSE, ORAL ; 200 MG MILLIGRAM(S) DAILY DOSE, ORAL
     Route: 048

REACTIONS (2)
  - VASODILATATION [None]
  - CEREBRAL INFARCTION [None]
